FAERS Safety Report 6429834-9 (Version None)
Quarter: 2009Q4

REPORT INFORMATION
  Report Type: 
  Country: None (occurrence: None)
  Receive Date: 20091106
  Receipt Date: 20091028
  Transmission Date: 20100525
  Serious: Yes (Hospitalization, Disabling)
  Sender: FDA-Public Use
  Company Number: US-JNJFOC-20091100149

PATIENT
  Sex: Female
  Weight: 63.96 kg

DRUGS (1)
  1. DURAGESIC-100 [Suspect]
     Indication: PAIN
     Route: 062
     Dates: start: 19950101, end: 20091014

REACTIONS (6)
  - ARTHRITIS [None]
  - INTERVERTEBRAL DISC DISORDER [None]
  - JOINT INJURY [None]
  - MOTOR DYSFUNCTION [None]
  - PAIN [None]
  - ROTATOR CUFF SYNDROME [None]
